FAERS Safety Report 12686305 (Version 2)
Quarter: 2016Q3

REPORT INFORMATION
  Report Type: Report from Study
  Country: CA (occurrence: CA)
  Receive Date: 20160825
  Receipt Date: 20160902
  Transmission Date: 20161109
  Serious: No
  Sender: FDA-Public Use
  Company Number: CA-REGENERON PHARMACEUTICALS, INC.-2016-20858

PATIENT

DRUGS (3)
  1. EYLEA [Suspect]
     Active Substance: AFLIBERCEPT
     Dosage: UNKNOWN
     Dates: start: 20140924, end: 20140924
  2. EYLEA [Suspect]
     Active Substance: AFLIBERCEPT
     Indication: NEOVASCULAR AGE-RELATED MACULAR DEGENERATION
     Dosage: UNKNOWN
     Dates: start: 20140723, end: 20140723
  3. EYLEA [Suspect]
     Active Substance: AFLIBERCEPT
     Dosage: UNKNOWN
     Dates: start: 20140820, end: 20140820

REACTIONS (1)
  - Drug ineffective [Unknown]
